FAERS Safety Report 8447708 (Version 3)
Quarter: 2012Q4

REPORT INFORMATION
  Report Type: 
  Country: US (occurrence: US)
  Receive Date: 20120308
  Receipt Date: 20121030
  Transmission Date: 20130627
  Serious: Yes (Hospitalization)
  Sender: FDA-Public Use
  Company Number: PHHO2012US003821

PATIENT
  Age: 64 Year
  Sex: Male
  Weight: 99.77 kg

DRUGS (12)
  1. BLINDED ENALAPRIL [Suspect]
     Indication: CARDIAC FAILURE CHRONIC
     Dosage: Double blinded
     Route: 048
     Dates: start: 20101004, end: 20120227
  2. BLINDED LCZ696 [Suspect]
     Indication: CARDIAC FAILURE CHRONIC
     Dosage: Double blinded
     Route: 048
     Dates: start: 20101004, end: 20120227
  3. BLINDED NO TREATMENT RECEIVED [Suspect]
     Indication: CARDIAC FAILURE CHRONIC
     Dosage: Double blinded
     Route: 048
     Dates: start: 20101004, end: 20120227
  4. BLINDED ENALAPRIL [Suspect]
     Dosage: Double blinded
     Route: 048
  5. BLINDED LCZ696 [Suspect]
     Dosage: Double blinded
     Route: 048
  6. BLINDED NO TREATMENT RECEIVED [Suspect]
     Dosage: Double blinded
     Route: 048
  7. FUROSEMIDE [Suspect]
     Indication: CARDIAC FAILURE CHRONIC
     Dosage: 40 mg, TID
     Dates: start: 20120203, end: 20120227
  8. FUROSEMIDE [Suspect]
     Dosage: 40 mg, BID
     Dates: start: 20120301
  9. SPIRONOLACTONE [Concomitant]
     Indication: CARDIAC FAILURE CHRONIC
     Dosage: 12.5 mg, QD, M-W-F
     Dates: start: 20050226, end: 20120222
  10. LISINOPRIL [Concomitant]
     Indication: CARDIAC FAILURE
     Dosage: 20 mg, BID
     Dates: start: 20061206
  11. PLAVIX [Concomitant]
     Indication: CORONARY ARTERY DISEASE
     Dosage: 75 mg, QD
     Dates: start: 20020215, end: 20120222
  12. METOPROLOL SUCCINATE [Concomitant]
     Indication: CARDIAC FAILURE CHRONIC
     Dosage: 50 mg, QD
     Dates: start: 20050226, end: 20120222

REACTIONS (3)
  - Renal impairment [Recovered/Resolved]
  - Angina pectoris [Recovered/Resolved]
  - Bronchitis chronic [Recovered/Resolved]
